FAERS Safety Report 6779663-1 (Version None)
Quarter: 2010Q2

REPORT INFORMATION
  Report Type: 
  Country: None (occurrence: None)
  Receive Date: 20100618
  Receipt Date: 20100602
  Transmission Date: 20101027
  Serious: Yes (Other)
  Sender: FDA-Public Use
  Company Number: US-PERRIGO-10US007992

PATIENT
  Sex: Female
  Weight: 57.596 kg

DRUGS (3)
  1. OXYMETAZOLINE HYDROCHLORIDE 0.05% 388 [Suspect]
     Indication: NASAL CONGESTION
     Dosage: 1 SPRAY, ONCE
     Route: 045
     Dates: start: 20100312, end: 20100312
  2. OXYMETAZOLINE HYDROCHLORIDE 0.05% 388 [Suspect]
     Indication: NASOPHARYNGITIS
  3. ANTIHYPERTENSIVES [Concomitant]
     Indication: HYPOTENSION
     Dosage: 1/2 PILL DAILY AS NEEDED
     Route: 048

REACTIONS (12)
  - DACRYOSTENOSIS ACQUIRED [None]
  - DRY EYE [None]
  - EYE IRRITATION [None]
  - EYE PAIN [None]
  - FACIAL PAIN [None]
  - FUCHS' SYNDROME [None]
  - KERATITIS [None]
  - NASAL DISCOMFORT [None]
  - ORAL DISCOMFORT [None]
  - SWELLING FACE [None]
  - VISION BLURRED [None]
  - VISUAL ACUITY REDUCED [None]
